FAERS Safety Report 7754737-7 (Version None)
Quarter: 2011Q3

REPORT INFORMATION
  Report Type: 
  Country: None (occurrence: None)
  Receive Date: 20110915
  Receipt Date: 20110902
  Transmission Date: 20111222
  Serious: Yes (Other)
  Sender: FDA-Public Use
  Company Number: GB-MYLANLABS-2011S1018466

PATIENT
  Age: 76 Year
  Sex: Male

DRUGS (17)
  1. TAMSULOSIN HCL [Suspect]
     Indication: PRODUCT USED FOR UNKNOWN INDICATION
  2. SENNA [Suspect]
     Indication: PRODUCT USED FOR UNKNOWN INDICATION
  3. FINASTERIDE [Suspect]
     Route: 048
     Dates: start: 20100519
  4. FINASTERIDE [Suspect]
     Route: 048
     Dates: start: 20091127
  5. FINASTERIDE [Suspect]
     Route: 048
     Dates: start: 20100119
  6. FINASTERIDE [Suspect]
     Route: 048
     Dates: start: 20100414
  7. FINASTERIDE [Suspect]
     Route: 048
     Dates: start: 20110810
  8. ASPIRIN [Suspect]
     Indication: PRODUCT USED FOR UNKNOWN INDICATION
     Dates: start: 20110517
  9. BETA BLOCKING AGENTS [Suspect]
     Indication: PRODUCT USED FOR UNKNOWN INDICATION
  10. FINASTERIDE [Suspect]
     Route: 048
     Dates: start: 20100219
  11. FINASTERIDE [Suspect]
     Route: 048
     Dates: start: 20100323
  12. SIMVASTATIN [Suspect]
     Indication: PRODUCT USED FOR UNKNOWN INDICATION
     Dates: start: 20110704
  13. CANDESARTAN CILEXETIL [Suspect]
     Indication: PRODUCT USED FOR UNKNOWN INDICATION
  14. FINASTERIDE [Suspect]
     Indication: PRODUCT USED FOR UNKNOWN INDICATION
     Route: 048
     Dates: start: 20100616
  15. FINASTERIDE [Suspect]
     Route: 048
     Dates: start: 20091229
  16. LOSARTAN POTASSIUM [Suspect]
     Indication: PRODUCT USED FOR UNKNOWN INDICATION
     Dates: start: 20110713
  17. FLECAINIDE ACETATE [Concomitant]
     Indication: PRODUCT USED FOR UNKNOWN INDICATION

REACTIONS (5)
  - LOSS OF CONSCIOUSNESS [None]
  - ATRIOVENTRICULAR BLOCK FIRST DEGREE [None]
  - VENTRICULAR EXTRASYSTOLES [None]
  - HAEMATURIA [None]
  - DIZZINESS [None]
